FAERS Safety Report 22265073 (Version 2)
Quarter: 2023Q4

REPORT INFORMATION
  Report Type: Spontaneous
  Country: US (occurrence: US)
  Receive Date: 20230428
  Receipt Date: 20231009
  Transmission Date: 20240110
  Serious: No
  Sender: FDA-Public Use
  Company Number: US-BRISTOL-MYERS SQUIBB COMPANY-2023-060163

PATIENT
  Age: 75 Year
  Sex: Female

DRUGS (1)
  1. REVLIMID [Suspect]
     Active Substance: LENALIDOMIDE
     Indication: Follicular lymphoma
     Dosage: FREQUENCY: 21 DAYS ON 7 DAYS OFF.
     Route: 048

REACTIONS (4)
  - Muscle spasms [Unknown]
  - Insomnia [Unknown]
  - Fatigue [Unknown]
  - Rash [Recovered/Resolved]
